FAERS Safety Report 23235897 (Version 1)
Quarter: 2023Q4

REPORT INFORMATION
  Report Type: Spontaneous
  Country: US (occurrence: US)
  Receive Date: 20231128
  Receipt Date: 20231128
  Transmission Date: 20240110
  Serious: No
  Sender: FDA-Public Use
  Company Number: US-PFIZER INC-202300397296

PATIENT
  Age: 75 Year
  Sex: Female
  Weight: 46.712 kg

DRUGS (1)
  1. PAXLOVID [Suspect]
     Active Substance: NIRMATRELVIR\RITONAVIR
     Indication: COVID-19 treatment
     Dosage: 2 PINK TABLETS AND ONE 1 WHITE TABLET, TAKE TWICE A DAY 12 HOURS A PART
     Route: 048
     Dates: start: 20231120

REACTIONS (4)
  - Cough [Unknown]
  - Angiopathy [Not Recovered/Not Resolved]
  - Oropharyngeal pain [Unknown]
  - Product dose omission issue [Unknown]

NARRATIVE: CASE EVENT DATE: 20231121
